FAERS Safety Report 5049274-7 (Version None)
Quarter: 2006Q2

REPORT INFORMATION
  Report Type: 
  Country: None (occurrence: None)
  Receive Date: 20060613
  Receipt Date: 20060410
  Transmission Date: 20061013
  Serious: No
  Sender: FDA-Public Use
  Company Number: 2006-00817

PATIENT
  Age: 67 Year
  Sex: Female
  Weight: 66.7 kg

DRUGS (1)
  1. VELCADE [Suspect]
     Indication: MULTIPLE MYELOMA
     Dosage: 1.80MG
     Dates: start: 20051101, end: 20060101

REACTIONS (4)
  - ABDOMINAL PAIN UPPER [None]
  - DECREASED APPETITE [None]
  - DIARRHOEA [None]
  - DIZZINESS [None]
